FAERS Safety Report 23116722 (Version 1)
Quarter: 2023Q4

REPORT INFORMATION
  Report Type: Spontaneous
  Country: US (occurrence: None)
  Receive Date: 20231026
  Receipt Date: 20231026
  Transmission Date: 20240109
  Serious: Yes (Hospitalization)
  Sender: FDA-Public Use
  Company Number: None

PATIENT
  Age: 88 Year
  Sex: Female

DRUGS (1)
  1. ORENCIA [Suspect]
     Active Substance: ABATACEPT

REACTIONS (7)
  - Manufacturing product shipping issue [None]
  - Fall [None]
  - Product dose omission in error [None]
  - Fracture [None]
  - Therapy interrupted [None]
  - Pain [None]
  - Condition aggravated [None]
